FAERS Safety Report 6315491-9 (Version None)
Quarter: 2009Q3

REPORT INFORMATION
  Report Type: 
  Country: None (occurrence: None)
  Receive Date: 20090819
  Receipt Date: 20090807
  Transmission Date: 20100115
  Serious: Yes (Life-Threatening, Hospitalization)
  Sender: FDA-Public Use
  Company Number: SI-WYE-H10559909

PATIENT
  Sex: Male

DRUGS (4)
  1. TAZOCIN [Suspect]
     Route: 042
     Dates: start: 20060313, end: 20060316
  2. ATORVASTATIN CALCIUM [Concomitant]
     Dosage: 20 MG
     Route: 048
  3. EDEMID [Concomitant]
     Dosage: 20 MG
     Route: 048
  4. ASPIRIN [Concomitant]
     Dosage: 100 MG

REACTIONS (1)
  - TORSADE DE POINTES [None]
